FAERS Safety Report 19644064 (Version 1)
Quarter: 2021Q3

REPORT INFORMATION
  Report Type: Other
  Country: TR (occurrence: TR)
  Receive Date: 20210731
  Receipt Date: 20210731
  Transmission Date: 20211014
  Serious: Yes (Other)
  Sender: FDA-Public Use
  Company Number: TR-EMD SERONO-9254004

PATIENT
  Age: 54 Year
  Sex: Female

DRUGS (1)
  1. CHORIOGONADOTROPIN ALFA [Suspect]
     Active Substance: CHORIOGONADOTROPIN ALFA
     Indication: WEIGHT DECREASED
     Route: 058

REACTIONS (5)
  - Pulmonary embolism [Recovering/Resolving]
  - Breast swelling [Recovering/Resolving]
  - Intentional product use issue [Recovering/Resolving]
  - Flushing [Recovering/Resolving]
  - Postmenopausal haemorrhage [Recovering/Resolving]
